FAERS Safety Report 8989155 (Version 5)
Quarter: 2013Q3

REPORT INFORMATION
  Report Type: Spontaneous
  Country: US (occurrence: US)
  Receive Date: 20121227
  Receipt Date: 20130925
  Transmission Date: 20140515
  Serious: Yes (Death, Hospitalization)
  Sender: FDA-Public Use
  Company Number: US-B.I. PHARMACEUTICALS,INC./RIDGEFIELD-2012-BI-04029BP

PATIENT
  Age: 68 Year
  Sex: Female
  Weight: 48.53 kg

DRUGS (14)
  1. PRADAXA [Suspect]
     Indication: ANTICOAGULANT THERAPY
     Dosage: 300 MG
     Route: 048
     Dates: start: 201012
  2. PRADAXA [Suspect]
     Indication: ATRIAL FIBRILLATION
     Dosage: 300 MG
     Route: 048
     Dates: end: 20110518
  3. PRADAXA [Suspect]
     Route: 048
  4. OXYCODONE 5MG [Concomitant]
  5. FUROSEMIDE 20MG [Concomitant]
  6. METHYLPHENIDATE 20MG [Concomitant]
  7. LISINOPRIL 20MG [Concomitant]
  8. HYDROCODONE [Concomitant]
     Dates: start: 2010, end: 2012
  9. DIGOXIN [Concomitant]
  10. BISOPROLOL [Concomitant]
  11. BENEFIBER [Concomitant]
  12. POTASSIUM CHLORIDE [Concomitant]
  13. SPIRONOLACTONE [Concomitant]
  14. LORTAB [Concomitant]

REACTIONS (2)
  - Death [Fatal]
  - Gastrointestinal haemorrhage [Unknown]
